FAERS Safety Report 9348935 (Version 1)
Quarter: 2013Q2

REPORT INFORMATION
  Report Type: Spontaneous
  Country: DK (occurrence: PL)
  Receive Date: 20130614
  Receipt Date: 20130614
  Transmission Date: 20140414
  Serious: Yes (Other)
  Sender: FDA-Public Use
  Company Number: PL-FRI-1000045925

PATIENT
  Sex: Male

DRUGS (2)
  1. LEXAPRO [Suspect]
     Dosage: 10 MG
     Route: 048
  2. LEXAPRO [Suspect]
     Route: 048

REACTIONS (4)
  - Immunosuppression [Unknown]
  - Nasal inflammation [Unknown]
  - Tendon pain [Unknown]
  - Myalgia [Unknown]
